FAERS Safety Report 7392495-9 (Version None)
Quarter: 2011Q2

REPORT INFORMATION
  Report Type: 
  Country: None (occurrence: None)
  Receive Date: 20110404
  Receipt Date: 20110322
  Transmission Date: 20111010
  Serious: Yes (Other)
  Sender: FDA-Public Use
  Company Number: ES-ELI_LILLY_AND_COMPANY-ES201011000703

PATIENT
  Age: 69 Year
  Sex: Male

DRUGS (2)
  1. CORTICOSTEROIDS [Concomitant]
     Indication: MYELOPROLIFERATIVE DISORDER
     Dosage: UNK, UNKNOWN
     Route: 065
  2. FORTEO [Suspect]
     Indication: SPINAL FRACTURE
     Dosage: UNK, UNKNOWN
     Route: 058
     Dates: start: 20100927, end: 20101022

REACTIONS (3)
  - HYPERTENSION [None]
  - FEELING COLD [None]
  - TACHYCARDIA [None]
